FAERS Safety Report 12511166 (Version 1)
Quarter: 2016Q2

REPORT INFORMATION
  Report Type: Report from Study
  Country: CO (occurrence: CO)
  Receive Date: 20160629
  Receipt Date: 20160629
  Transmission Date: 20160815
  Serious: Yes (Hospitalization, Other)
  Sender: FDA-Public Use
  Company Number: CO-ABBVIE-16P-036-1663854-00

PATIENT
  Age: 75 Year
  Sex: Female
  Weight: 51 kg

DRUGS (1)
  1. ZEMPLAR [Suspect]
     Active Substance: PARICALCITOL
     Indication: HYPERPARATHYROIDISM SECONDARY
     Route: 048
     Dates: start: 20150713, end: 20160329

REACTIONS (4)
  - Localised infection [Recovering/Resolving]
  - Neuropathy peripheral [Recovering/Resolving]
  - Pain in extremity [Recovering/Resolving]
  - Diabetic foot [Recovering/Resolving]

NARRATIVE: CASE EVENT DATE: 201601
